FAERS Safety Report 11641610 (Version 1)
Quarter: 2015Q4

REPORT INFORMATION
  Report Type: Spontaneous
  Country: US (occurrence: US)
  Receive Date: 20151019
  Receipt Date: 20151019
  Transmission Date: 20160304
  Serious: Yes (Hospitalization, Other)
  Sender: FDA-Public Use
  Company Number: US-TEVA-601486USA

PATIENT
  Age: 31 Year
  Sex: Female

DRUGS (1)
  1. OXYMORPHONE HYDROCHLORIDE. [Suspect]
     Active Substance: OXYMORPHONE HYDROCHLORIDE
     Indication: DRUG ABUSE
     Dosage: IV ADMINISTRATION OF CRUSHED ORAL MEDICATION
     Route: 042

REACTIONS (3)
  - Multi-organ failure [Unknown]
  - Drug abuse [Unknown]
  - Thrombotic microangiopathy [Unknown]
